FAERS Safety Report 17874673 (Version 1)
Quarter: 2020Q2

REPORT INFORMATION
  Report Type: Spontaneous
  Country: US (occurrence: US)
  Receive Date: 20200608
  Receipt Date: 20200608
  Transmission Date: 20200714
  Serious: No
  Sender: FDA-Public Use
  Company Number: None

PATIENT
  Age: 26 Year
  Sex: Female
  Weight: 122 kg

DRUGS (12)
  1. BENZONATTE 100 MG PO TID PRN COUGH [Concomitant]
     Dates: start: 20200603
  2. AZITHROMYCIN 500 MG PO DAILY [Concomitant]
     Dates: start: 20200603, end: 20200607
  3. CEFTRIAXONE 1 GRAM IV Q24H [Concomitant]
     Dates: start: 20200603, end: 20200607
  4. DEXTROMETHORPHAN 60 MG PO Q12H [Concomitant]
     Dates: start: 20200603
  5. DEXMEDETOMIDINE 400 MCG AT 0.2 MCG/KG/HR IV [Concomitant]
     Dates: start: 20200606, end: 20200606
  6. METHYLPREDNISOLONE 20 MG IV Q6H [Concomitant]
     Dates: start: 20200603
  7. ACETAMINOPHEN/HYDROCODONE 5/235 1 TAB Q4H PRN PAIN [Concomitant]
     Dates: start: 20200603
  8. ALPRAZOLAM 0.5 MG Q8H PRN ANZIETY [Concomitant]
     Dates: start: 20200605
  9. ENOXAPARIN 60 MG Q12H [Concomitant]
     Dates: start: 20200603
  10. CODEINE-GUAIFENESIN 10-100 MG PO Q4H PRN COUGH [Concomitant]
     Dates: start: 20200603
  11. REMDESIVIR. [Suspect]
     Active Substance: REMDESIVIR
     Indication: COVID-19 PNEUMONIA
     Route: 040
     Dates: start: 20200604, end: 20200607
  12. GUAIFENESIN ER 600 MG PO BID [Concomitant]
     Dates: start: 20200603

REACTIONS (3)
  - Alanine aminotransferase increased [None]
  - Drug interaction [None]
  - Liver function test increased [None]

NARRATIVE: CASE EVENT DATE: 20200607
